FAERS Safety Report 4493378-4 (Version None)
Quarter: 2004Q4

REPORT INFORMATION
  Report Type: 
  Country: None (occurrence: None)
  Receive Date: 20041104
  Receipt Date: 20041028
  Transmission Date: 20050328
  Serious: Yes (Hospitalization)
  Sender: FDA-Public Use
  Company Number: DE-MERCK-0410DEU00780

PATIENT
  Age: 75 Year
  Sex: Female

DRUGS (1)
  1. VIOXX [Suspect]
     Indication: BONE PAIN
     Route: 048
     Dates: start: 20040101, end: 20040801

REACTIONS (1)
  - CEREBROVASCULAR ACCIDENT [None]
